FAERS Safety Report 8337053-4 (Version None)
Quarter: 2012Q2

REPORT INFORMATION
  Report Type: 
  Country: None (occurrence: None)
  Receive Date: 20120501
  Receipt Date: 20120426
  Transmission Date: 20120825
  Serious: Yes (Disabling, Other)
  Sender: FDA-Public Use
  Company Number: GER/UKI/12/0024095

PATIENT
  Age: 73 Year
  Sex: Female
  Weight: 74 kg

DRUGS (6)
  1. PREMARIN [Concomitant]
  2. RAMIPRIL [Concomitant]
  3. NOVOMIX (NOVOMIX) [Concomitant]
  4. DONEPEZIL HCL [Suspect]
     Indication: DEMENTIA
     Dosage: 5 MG, 1 IN 1 D, ORAL
     Route: 048
     Dates: start: 20111028
  5. BENDROFLUMETHIAZIDE (VENDROFLUMETHIAZIDE) [Concomitant]
  6. SIMVASTATIN [Concomitant]

REACTIONS (1)
  - HYPERSEXUALITY [None]
